FAERS Safety Report 7544128-6 (Version None)
Quarter: 2011Q2

REPORT INFORMATION
  Report Type: 
  Country: None (occurrence: None)
  Receive Date: 20110613
  Receipt Date: 20060222
  Transmission Date: 20111010
  Serious: Yes (Other)
  Sender: FDA-Public Use
  Company Number: PHHO2005CA12911

PATIENT
  Sex: Female

DRUGS (3)
  1. SANDOSTATIN LAR [Suspect]
     Indication: CARCINOID TUMOUR
     Dosage: 20MG, EVERY 4 WEEKS
     Dates: start: 20040201
  2. VITAMIN B-12 [Concomitant]
  3. PHENAZO [Concomitant]
     Indication: PAIN

REACTIONS (1)
  - URINARY TRACT INFECTION [None]
